FAERS Safety Report 7541402 (Version 7)
Quarter: 2013Q1

REPORT INFORMATION
  Report Type: Spontaneous
  Country: US (occurrence: US)
  Receive Date: 20100816
  Receipt Date: 20130130
  Transmission Date: 20140127
  Serious: No
  Sender: FDA-Public Use
  Company Number: US-RB-012706-10

PATIENT
  Age: 55 Year
  Sex: Male

DRUGS (8)
  1. SUBOXONE TABLET [Suspect]
     Indication: DRUG DEPENDENCE
     Route: 060
     Dates: start: 20100701
  2. SUBOXONE FILM [Suspect]
     Indication: DRUG DEPENDENCE
     Route: 060
  3. SUBOXONE FILM [Suspect]
     Dosage: SUBOXONE FILM
     Route: 048
     Dates: start: 201007
  4. SUBOXONE FILM [Suspect]
     Dosage: SUBOXONE FILM
     Route: 048
     Dates: start: 201205
  5. ATIVAN [Suspect]
     Indication: PRODUCT USED FOR UNKNOWN INDICATION
     Dosage: UNKNOWN DOSING DETAILS
     Route: 065
  6. HALCION [Suspect]
     Indication: INSOMNIA
     Route: 048
  7. VALIUM [Suspect]
     Indication: ANXIETY
     Route: 048
  8. XANAX [Concomitant]
     Indication: ANXIETY
     Route: 065
     Dates: start: 2009

REACTIONS (8)
  - Anxiety [Not Recovered/Not Resolved]
  - Decreased appetite [Recovered/Resolved]
  - Insomnia [Not Recovered/Not Resolved]
  - Condition aggravated [Not Recovered/Not Resolved]
  - Pain in extremity [Recovered/Resolved]
  - Restlessness [Recovered/Resolved]
  - Dyspnoea [Recovered/Resolved]
  - Headache [Recovering/Resolving]
